FAERS Safety Report 5021082-2 (Version None)
Quarter: 2006Q2

REPORT INFORMATION
  Report Type: 
  Country: None (occurrence: None)
  Receive Date: 20060606
  Receipt Date: 20060606
  Transmission Date: 20061013
  Serious: Yes (Other)
  Sender: FDA-Public Use
  Company Number: None

PATIENT

DRUGS (1)
  1. LOVENOX [Suspect]
     Dosage: VARIABLE
     Dates: start: 20060101, end: 20060602

REACTIONS (2)
  - ACCIDENTAL NEEDLE STICK [None]
  - MEDICATION ERROR [None]
